FAERS Safety Report 5388486-X (Version None)
Quarter: 2007Q3

REPORT INFORMATION
  Report Type: 
  Country: None (occurrence: None)
  Receive Date: 20070716
  Receipt Date: 20070709
  Transmission Date: 20080115
  Serious: Yes (Other)
  Sender: FDA-Public Use
  Company Number: US-ASTRAZENECA-2007AC01263

PATIENT
  Sex: Male

DRUGS (4)
  1. GOSERELIN [Suspect]
     Indication: PROSTATE CANCER
  2. BICALUTAMIDE [Suspect]
     Indication: PROSTATE CANCER
  3. RADIOTHERAPY [Concomitant]
     Indication: PROSTATE CANCER
  4. BRACHYTHERAPY [Concomitant]
     Indication: PROSTATE CANCER

REACTIONS (1)
  - RECTAL ULCER [None]
